FAERS Safety Report 24358905 (Version 1)
Quarter: 2024Q3

REPORT INFORMATION
  Report Type: Spontaneous
  Country: HR (occurrence: HR)
  Receive Date: 20240924
  Receipt Date: 20240924
  Transmission Date: 20241016
  Serious: Yes (Death, Other)
  Sender: BOEHRINGER INGELHEIM
  Company Number: HR-BoehringerIngelheim-2024-BI-052791

PATIENT
  Age: 73 Year
  Sex: Male

DRUGS (4)
  1. NINTEDANIB [Suspect]
     Active Substance: NINTEDANIB
     Indication: Lung adenocarcinoma
     Dosage: SECOND LINE TREATMENT
     Dates: start: 202306, end: 202401
  2. NINTEDANIB [Suspect]
     Active Substance: NINTEDANIB
  3. NINTEDANIB [Suspect]
     Active Substance: NINTEDANIB
     Dosage: SECOND LINE TREATMENT
  4. DOCETAXEL [Concomitant]
     Active Substance: DOCETAXEL\DOCETAXEL ANHYDROUS
     Indication: Product used for unknown indication
     Dosage: THERAPY IN SECOND LINE
     Dates: start: 202306

REACTIONS (4)
  - Condition aggravated [Fatal]
  - Malignant neoplasm progression [Fatal]
  - Transaminases increased [Recovered/Resolved]
  - Diarrhoea [Recovered/Resolved]

NARRATIVE: CASE EVENT DATE: 20240101
